FAERS Safety Report 5351121-0 (Version None)
Quarter: 2007Q2

REPORT INFORMATION
  Report Type: 
  Country: None (occurrence: None)
  Receive Date: 20070521
  Receipt Date: 20070329
  Transmission Date: 20071010
  Serious: No
  Sender: FDA-Public Use
  Company Number: WAES 0703USA05611

PATIENT
  Age: 82 Year
  Sex: Male

DRUGS (11)
  1. JANUVIA [Suspect]
     Indication: DIABETES MELLITUS
     Dosage: 100 MG/DAILY/PO
     Route: 048
     Dates: end: 20070318
  2. JANUVIA [Suspect]
     Indication: DIABETES MELLITUS
     Dosage: 100 MG/DAILY/PO
     Route: 048
     Dates: start: 20070328
  3. AVANDIA [Concomitant]
  4. COUMADIN [Concomitant]
  5. LASIX [Concomitant]
  6. LEXAPRO [Concomitant]
  7. LOPRESSOR [Concomitant]
  8. NEXIUM [Concomitant]
  9. NOVOLOG [Concomitant]
  10. TYLENOL [Concomitant]
  11. DIGOXIN [Concomitant]

REACTIONS (2)
  - BLOOD GLUCOSE DECREASED [None]
  - DYSGEUSIA [None]
